FAERS Safety Report 6431928-9 (Version None)
Quarter: 2009Q4

REPORT INFORMATION
  Report Type: 
  Country: None (occurrence: None)
  Receive Date: 20091109
  Receipt Date: 20091029
  Transmission Date: 20100525
  Serious: Yes (Hospitalization)
  Sender: FDA-Public Use
  Company Number: US-BIOGENIDEC-2009BI032836

PATIENT
  Age: 57 Year
  Sex: Female

DRUGS (14)
  1. AVONEX [Suspect]
     Indication: MULTIPLE SCLEROSIS
     Route: 030
     Dates: start: 19990101, end: 20030101
  2. AVONEX [Suspect]
     Route: 030
     Dates: start: 20030101
  3. PNEUMOVAX 23 [Concomitant]
     Dates: start: 19990101
  4. PNEUMOVAX 23 [Concomitant]
     Dates: start: 20070101
  5. PROTONIX [Concomitant]
  6. LOVAZA [Concomitant]
  7. ACETAMINOPHEN AND HYDROCODONE BITARTRATE [Concomitant]
     Indication: PELVIC PAIN
  8. TOPROL-XL [Concomitant]
  9. LEVAQUIN [Concomitant]
  10. NORVASC [Concomitant]
  11. CALTRATE [Concomitant]
  12. ACTONEL [Concomitant]
  13. TRIMETHOPRIM [Concomitant]
  14. PROCRIT [Concomitant]

REACTIONS (4)
  - DEEP VEIN THROMBOSIS [None]
  - HELICOBACTER INFECTION [None]
  - ULCER HAEMORRHAGE [None]
  - WEIGHT DECREASED [None]
